FAERS Safety Report 9285298 (Version 1)
Quarter: 2013Q2

REPORT INFORMATION
  Report Type: Spontaneous
  Country: DE (occurrence: None)
  Receive Date: 20130507
  Receipt Date: 20130507
  Transmission Date: 20140414
  Serious: Yes (Other)
  Sender: FDA-Public Use
  Company Number: DE-ALKEM-000045

PATIENT
  Age: 48 Year
  Sex: Female
  Weight: 74 kg

DRUGS (2)
  1. QUETIAPINE [Suspect]
     Indication: BIPOLAR I DISORDER
  2. CITALOPRAM(CITALOPRAM) [Concomitant]

REACTIONS (2)
  - Weight increased [None]
  - Food craving [None]
